FAERS Safety Report 8500090 (Version 8)
Quarter: 2016Q3

REPORT INFORMATION
  Report Type: Spontaneous
  Country: US (occurrence: US)
  Receive Date: 20120409
  Receipt Date: 20160810
  Transmission Date: 20161109
  Serious: Yes (Hospitalization, Other)
  Sender: FDA-Public Use
  Company Number: US-009507513-1204USA00884

PATIENT
  Sex: Female
  Weight: 112.95 kg

DRUGS (10)
  1. ALENDRONATE SODIUM. [Suspect]
     Active Substance: ALENDRONATE SODIUM
     Indication: OSTEOPOROSIS
     Dosage: 70 MG, UNK
     Route: 065
     Dates: start: 20090410, end: 20100313
  2. LYRICA [Concomitant]
     Active Substance: PREGABALIN
     Indication: FIBROMYALGIA
     Route: 065
  3. FOSAMAX [Suspect]
     Active Substance: ALENDRONATE SODIUM
     Indication: OSTEOPENIA
  4. INSULIN LISPRO [Concomitant]
     Active Substance: INSULIN LISPRO
     Indication: DIABETES MELLITUS
     Route: 065
  5. NOVOLOG [Concomitant]
     Active Substance: INSULIN ASPART
     Indication: DIABETES MELLITUS
     Route: 065
  6. NOVOLIN NPH [Concomitant]
     Active Substance: INSULIN HUMAN
     Indication: DIABETES MELLITUS
     Route: 065
  7. FOSAMAX [Suspect]
     Active Substance: ALENDRONATE SODIUM
     Indication: OSTEOPOROSIS
     Dosage: 70 MG, QW
     Route: 048
     Dates: start: 2003, end: 2009
  8. ALENDRONATE SODIUM. [Suspect]
     Active Substance: ALENDRONATE SODIUM
     Indication: OSTEOPENIA
  9. LANTUS [Concomitant]
     Active Substance: INSULIN GLARGINE
     Indication: DIABETES MELLITUS
     Route: 065
  10. METFORMIN [Concomitant]
     Active Substance: METFORMIN HYDROCHLORIDE
     Indication: DIABETES MELLITUS
     Route: 065

REACTIONS (70)
  - Urinary incontinence [Unknown]
  - Femur fracture [Recovering/Resolving]
  - Fungal infection [Unknown]
  - Dehydration [Unknown]
  - Spinal osteoarthritis [Unknown]
  - Osteoarthritis [Unknown]
  - Nephropathy [Unknown]
  - Limb operation [Unknown]
  - Pulmonary congestion [Unknown]
  - Cellulitis [Unknown]
  - Drug ineffective [Unknown]
  - Pneumothorax [Unknown]
  - Mastectomy [Unknown]
  - Vaginoplasty [Unknown]
  - Low turnover osteopathy [Unknown]
  - Colon adenoma [Unknown]
  - Gastroenteritis [Unknown]
  - Femur fracture [Unknown]
  - Fall [Unknown]
  - Deafness [Unknown]
  - Impaired healing [Unknown]
  - Nasal congestion [Unknown]
  - Cushing^s syndrome [Unknown]
  - Claustrophobia [Unknown]
  - Compression fracture [Unknown]
  - Cataract [Unknown]
  - Helicobacter infection [Unknown]
  - Vertebroplasty [Unknown]
  - Diabetes mellitus inadequate control [Not Recovered/Not Resolved]
  - Joint effusion [Unknown]
  - Sleep apnoea syndrome [Unknown]
  - Bronchitis [Unknown]
  - Anaemia of chronic disease [Unknown]
  - Fall [Unknown]
  - Rotator cuff syndrome [Unknown]
  - Joint abscess [Unknown]
  - Peptic ulcer [Unknown]
  - Myalgia [Unknown]
  - Arthralgia [Unknown]
  - Packed red blood cell transfusion [Unknown]
  - Hypoacusis [Unknown]
  - Fibromyalgia [Unknown]
  - Osteoarthritis [Unknown]
  - Weight increased [Unknown]
  - Magnesium metabolism disorder [Unknown]
  - Conjunctivitis allergic [Unknown]
  - Headache [Unknown]
  - Cardiac failure congestive [Unknown]
  - Cholelithiasis [Unknown]
  - Sepsis [Unknown]
  - Pneumonia [Unknown]
  - Upper respiratory tract infection [Unknown]
  - Anaemia [Unknown]
  - Hypercholesterolaemia [Unknown]
  - Diabetic neuropathy [Unknown]
  - Retinopathy [Unknown]
  - Binge eating [Unknown]
  - Intestinal polyp [Unknown]
  - Pharyngitis [Unknown]
  - Hypokalaemia [Unknown]
  - Iron deficiency anaemia [Unknown]
  - Systemic inflammatory response syndrome [Unknown]
  - Systemic lupus erythematosus [Unknown]
  - Pulmonary mass [Unknown]
  - Swelling [Unknown]
  - Sciatica [Unknown]
  - Cardiomegaly [Unknown]
  - Asthma [Unknown]
  - Hyperlipidaemia [Unknown]
  - Back pain [Unknown]

NARRATIVE: CASE EVENT DATE: 200307
